FAERS Safety Report 24727997 (Version 1)
Quarter: 2024Q4

REPORT INFORMATION
  Report Type: Report from Study
  Country: US (occurrence: US)
  Receive Date: 20241212
  Receipt Date: 20241212
  Transmission Date: 20250114
  Serious: Yes (Hospitalization)
  Sender: SANDOZ
  Company Number: US-SANDOZ-SDZ2024US101479

PATIENT
  Sex: Male
  Weight: 47 kg

DRUGS (1)
  1. OMNITROPE [Suspect]
     Active Substance: SOMATROPIN
     Indication: Short stature
     Dosage: 2.4 MG, QD (2.4 MG 2 DOSE EVERY N/A N/A)
     Route: 058
     Dates: start: 20241011

REACTIONS (1)
  - Oropharyngeal pain [Unknown]
